FAERS Safety Report 7072010-X (Version None)
Quarter: 2010Q4

REPORT INFORMATION
  Report Type: 
  Country: None (occurrence: None)
  Receive Date: 20101029
  Receipt Date: 20100111
  Transmission Date: 20110411
  Serious: No
  Sender: FDA-Public Use
  Company Number: A0818144A

PATIENT
  Age: 66 Year
  Sex: Male

DRUGS (10)
  1. ADVAIR DISKUS 100/50 [Suspect]
     Indication: CHRONIC OBSTRUCTIVE PULMONARY DISEASE
     Dosage: 1PUFF TWICE PER DAY
     Route: 055
  2. SPIRIVA [Concomitant]
  3. DIOVAN [Concomitant]
  4. CENTRUM MULTI-VITAMINS [Concomitant]
  5. OMEPRAZOLE [Concomitant]
  6. THEOPHYLLINE [Concomitant]
  7. VITAMIN B COMPLEX CAP [Concomitant]
  8. FOLIC ACID [Concomitant]
  9. ANTACID TAB [Concomitant]
  10. ACETAMINOPHEN [Concomitant]

REACTIONS (2)
  - PRODUCT QUALITY ISSUE [None]
  - RESPIRATORY DISORDER [None]
